FAERS Safety Report 8803798 (Version 1)
Quarter: 2012Q4

REPORT INFORMATION
  Report Type: 
  Country: US (occurrence: US)
  Receive Date: 20120924
  Receipt Date: 20120924
  Transmission Date: 20130627
  Serious: Yes (Other)
  Sender: FDA-Public Use
  Company Number: US-ASTRAZENECA-2012SE72649

PATIENT
  Age: 53 Year
  Sex: Male

DRUGS (2)
  1. TOPROL XL [Suspect]
     Route: 048
  2. METFORMIN [Concomitant]

REACTIONS (7)
  - Back disorder [Unknown]
  - Sensory loss [Unknown]
  - Fall [Unknown]
  - Tendonitis [Unknown]
  - Eye disorder [Unknown]
  - Dementia [Unknown]
  - Dyspnoea [Unknown]
